FAERS Safety Report 18026736 (Version 1)
Quarter: 2020Q3

REPORT INFORMATION
  Report Type: Spontaneous
  Country: FR (occurrence: FR)
  Receive Date: 20200715
  Receipt Date: 20200715
  Transmission Date: 20201103
  Serious: Yes (Hospitalization)
  Sender: FDA-Public Use
  Company Number: FR-TEVA-2020-FR-1800162

PATIENT
  Age: 14 Year
  Sex: Female

DRUGS (4)
  1. NORSET [Suspect]
     Active Substance: MIRTAZAPINE
  2. PRAZEPAM [Suspect]
     Active Substance: PRAZEPAM
  3. ZOPICLONE [Suspect]
     Active Substance: ZOPICLONE
  4. ALPRAZOLAM. [Suspect]
     Active Substance: ALPRAZOLAM

REACTIONS (3)
  - Altered state of consciousness [Recovered/Resolved]
  - Tachypnoea [Recovered/Resolved]
  - Suicide attempt [Recovered/Resolved]
